FAERS Safety Report 17226427 (Version 2)
Quarter: 2020Q1

REPORT INFORMATION
  Report Type: Spontaneous
  Country: CH (occurrence: CH)
  Receive Date: 20200102
  Receipt Date: 20200217
  Transmission Date: 20200409
  Serious: Yes (Other)
  Sender: FDA-Public Use
  Company Number: CH-PFIZER INC-2019561684

PATIENT
  Age: 79 Year
  Sex: Female

DRUGS (23)
  1. TORASEMIDE [Concomitant]
     Active Substance: TORSEMIDE
  2. SODIUM CHLORIDE. [Concomitant]
     Active Substance: SODIUM CHLORIDE
     Dates: start: 20191209
  3. OMEPRAZOLE. [Concomitant]
     Active Substance: OMEPRAZOLE
     Dates: end: 20191129
  4. CETALLERG [Concomitant]
     Active Substance: CETIRIZINE HYDROCHLORIDE
     Dosage: UNK
     Dates: end: 20191208
  5. POTASSIUM [Concomitant]
     Active Substance: POTASSIUM
     Dates: start: 20191210
  6. PHYSIOTENS [Suspect]
     Active Substance: MOXONIDINE
     Dosage: 0.4 MG, 1X/DAY
     Dates: start: 20191129
  7. XARELTO [Suspect]
     Active Substance: RIVAROXABAN
     Dosage: 15 MG, 2X/DAY
     Dates: start: 20191202
  8. QUETIAPIN [Concomitant]
     Active Substance: QUETIAPINE
  9. LAXOBERON [Concomitant]
     Active Substance: SODIUM PICOSULFATE
  10. TRANSTEC [Concomitant]
     Active Substance: BUPRENORPHINE
     Dates: end: 20191129
  11. AZACTAM [Suspect]
     Active Substance: AZTREONAM
     Dosage: 2 G, 3X/DAY
     Dates: start: 20191208, end: 20191213
  12. RISPERDAL [Concomitant]
     Active Substance: RISPERIDONE
     Dosage: UNK
     Dates: end: 20191205
  13. NEXIUM [Concomitant]
     Active Substance: ESOMEPRAZOLE MAGNESIUM
     Dates: start: 20191129
  14. ALDACTONE [Suspect]
     Active Substance: SPIRONOLACTONE
     Dosage: 12.5 MG, 1X/DAY
     Dates: start: 20191209
  15. SERTRALINE [Concomitant]
     Active Substance: SERTRALINE HYDROCHLORIDE
  16. RIVOTRIL [Concomitant]
     Active Substance: CLONAZEPAM
     Dosage: AS NECESSARY
     Dates: start: 20191209
  17. CLYSSIE [Concomitant]
     Dosage: AS NECESSARY
     Dates: start: 20191204
  18. IPRAMOL [Concomitant]
     Active Substance: ALBUTEROL SULFATE\IPRATROPIUM BROMIDE
  19. ROBINUL [Suspect]
     Active Substance: GLYCOPYRROLATE
     Dosage: 0.2 MG, 3X/DAY
     Dates: start: 20191205, end: 20191210
  20. MORPHINE [Concomitant]
     Active Substance: MORPHINE
     Dates: start: 20191209
  21. SCOPODERM [HYOSCINE] [Concomitant]
     Active Substance: SCOPOLAMINE
     Dates: start: 20191210
  22. TAVANIC [Concomitant]
     Active Substance: LEVOFLOXACIN
     Dates: end: 20191129
  23. PODOMEXEF [Concomitant]
     Active Substance: CEFPODOXIME PROXETIL
     Dates: end: 20191129

REACTIONS (5)
  - Atrioventricular block complete [Recovered/Resolved]
  - Bradycardia [Unknown]
  - Bundle branch block left [Unknown]
  - Nodal rhythm [Unknown]
  - Chest pain [Unknown]

NARRATIVE: CASE EVENT DATE: 20191129
